FAERS Safety Report 6455948-3 (Version None)
Quarter: 2009Q4

REPORT INFORMATION
  Report Type: 
  Country: None (occurrence: None)
  Receive Date: 20091119
  Receipt Date: 20091110
  Transmission Date: 20100525
  Serious: Yes (Life-Threatening, Hospitalization, Other)
  Sender: FDA-Public Use
  Company Number: 2009AL007293

PATIENT
  Age: 17 Year
  Sex: Male

DRUGS (5)
  1. LORAZEPAM [Suspect]
     Indication: ANXIETY
     Dosage: 1.5 MG; QD; PO
     Route: 048
  2. DEPAKOTE [Concomitant]
  3. LORAZEPAM [Concomitant]
  4. RISPERIDONE [Concomitant]
  5. FLUOXETINE [Concomitant]

REACTIONS (11)
  - AGITATION [None]
  - APNOEA [None]
  - CARDIAC ARREST [None]
  - CONFUSIONAL STATE [None]
  - DRUG WITHDRAWAL SYNDROME [None]
  - MENTAL DISORDER [None]
  - NEUTROPENIA [None]
  - NEUTROPHIL COUNT DECREASED [None]
  - RESTLESSNESS [None]
  - SEDATION [None]
  - STATUS EPILEPTICUS [None]
